FAERS Safety Report 10424816 (Version 2)
Quarter: 2014Q3

REPORT INFORMATION
  Report Type: Spontaneous
  Country: US (occurrence: US)
  Receive Date: 20140902
  Receipt Date: 20140910
  Transmission Date: 20150326
  Serious: Yes (Death)
  Sender: FDA-Public Use
  Company Number: CHPA2014US011298

PATIENT
  Age: 34 Year
  Sex: Male

DRUGS (1)
  1. BUCKLEY^S UNKNOWN [Suspect]
     Active Substance: DEXTROMETHORPHAN
     Indication: COUGH
     Dosage: UNK
     Route: 048
     Dates: start: 1997

REACTIONS (1)
  - Death [Fatal]
